FAERS Safety Report 7135316-1 (Version None)
Quarter: 2010Q4

REPORT INFORMATION
  Report Type: 
  Country: None (occurrence: None)
  Receive Date: 20101203
  Receipt Date: 20101125
  Transmission Date: 20110411
  Serious: Yes (Other)
  Sender: FDA-Public Use
  Company Number: B0686833A

PATIENT
  Age: 36 Year
  Sex: Male

DRUGS (1)
  1. AVAMYS [Suspect]
     Indication: NASAL POLYPS
     Route: 045
     Dates: start: 20100101

REACTIONS (2)
  - ANOSMIA [None]
  - OFF LABEL USE [None]
